FAERS Safety Report 7126607-9 (Version None)
Quarter: 2010Q4

REPORT INFORMATION
  Report Type: 
  Country: None (occurrence: None)
  Receive Date: 20101129
  Receipt Date: 20101117
  Transmission Date: 20110411
  Serious: Yes (Death, Hospitalization)
  Sender: FDA-Public Use
  Company Number: JP-ABBOTT-10P-087-0631010-00

PATIENT
  Age: 91 Year
  Sex: Male

DRUGS (6)
  1. LEUPROLIDE ACETATE [Suspect]
     Indication: PROSTATE CANCER
     Dates: start: 20061014, end: 20080510
  2. FLUTAMIDE [Concomitant]
     Indication: PROSTATE CANCER STAGE III
     Route: 048
     Dates: start: 20060323, end: 20071015
  3. ESTRAMUSTINE PHOSPHATE SODIUM [Concomitant]
     Indication: PROSTATE CANCER STAGE III
     Route: 048
     Dates: start: 20071017, end: 20080610
  4. SENNOSIDE [Concomitant]
     Indication: CONSTIPATION
     Route: 048
     Dates: start: 20060406, end: 20080610
  5. OXYCONTIN [Concomitant]
     Indication: CANCER PAIN
     Route: 048
     Dates: start: 20071229, end: 20080610
  6. OXINORM [Concomitant]
     Indication: CANCER PAIN
     Route: 048
     Dates: start: 20080510, end: 20080610

REACTIONS (4)
  - CARDIAC FAILURE [None]
  - CEREBRAL INFARCTION [None]
  - PENILE PAIN [None]
  - PERINEAL PAIN [None]
